FAERS Safety Report 24103608 (Version 2)
Quarter: 2024Q4

REPORT INFORMATION
  Report Type: Spontaneous
  Country: US (occurrence: US)
  Receive Date: 20240717
  Receipt Date: 20241018
  Transmission Date: 20250115
  Serious: No
  Sender: ROCHE
  Company Number: US-ROCHE-3576394

PATIENT
  Age: 70 Year
  Sex: Female
  Weight: 63.5 kg

DRUGS (2)
  1. XOLAIR [Suspect]
     Active Substance: OMALIZUMAB
     Indication: Urticaria
     Dosage: YES,
     Route: 058
  2. XOLAIR [Suspect]
     Active Substance: OMALIZUMAB
     Route: 058

REACTIONS (9)
  - Accidental exposure to product [Unknown]
  - Product complaint [Unknown]
  - Product quality issue [Unknown]
  - Product quality issue [Unknown]
  - Underdose [Unknown]
  - Off label use [Unknown]
  - Pruritus [Unknown]
  - Product complaint [Unknown]
  - Device defective [Unknown]

NARRATIVE: CASE EVENT DATE: 20240601
